FAERS Safety Report 4378426-4 (Version None)
Quarter: 2004Q2

REPORT INFORMATION
  Report Type: 
  Country: None (occurrence: None)
  Receive Date: 20040609
  Receipt Date: 20040528
  Transmission Date: 20050107
  Serious: Yes (Hospitalization)
  Sender: FDA-Public Use
  Company Number: HQWYE171602JUN04

PATIENT
  Age: 50 Year
  Sex: Female

DRUGS (16)
  1. RAPAMUNE [Suspect]
     Indication: PROPHYLAXIS AGAINST TRANSPLANT REJECTION
     Dosage: 5 MG 1X PER 1 DAY, ORAL
     Route: 048
     Dates: start: 20040505
  2. ALLOPURINOL [Concomitant]
  3. AMBIEN [Concomitant]
  4. ATENOLOL [Concomitant]
  5. COUMADIN [Concomitant]
  6. NPH INSULIN [Concomitant]
  7. IMODIUM [Concomitant]
  8. LEVAQUIN [Concomitant]
  9. HYDROCODONE COMPOUND [Concomitant]
  10. MYCELEX [Concomitant]
  11. NEORAL [Concomitant]
  12. NORVASC (AMLODIPINE HYDROCHLORIDE) [Concomitant]
  13. PLAQUENIL [Concomitant]
  14. PREDNISONE TAB [Concomitant]
  15. SYNTHROID [Concomitant]
  16. VASOTEC [Concomitant]

REACTIONS (8)
  - DRUG INEFFECTIVE [None]
  - HAEMATOCRIT DECREASED [None]
  - HAEMOGLOBIN DECREASED [None]
  - HYDRONEPHROSIS [None]
  - KIDNEY TRANSPLANT REJECTION [None]
  - LEUKOPENIA [None]
  - PERINEPHRIC COLLECTION [None]
  - RENAL TUBULAR NECROSIS [None]
